FAERS Safety Report 5363932-6 (Version None)
Quarter: 2007Q2

REPORT INFORMATION
  Report Type: 
  Country: None (occurrence: None)
  Receive Date: 20070530
  Receipt Date: 20070103
  Transmission Date: 20071010
  Serious: No
  Sender: FDA-Public Use
  Company Number: 2007PV027766

PATIENT
  Age: 63 Year
  Sex: Male
  Weight: 128.368 kg

DRUGS (6)
  1. BYETTA [Suspect]
     Indication: DIABETES MELLITUS NON-INSULIN-DEPENDENT
     Dosage: 10 + 10 + 5 + 5 MCG; BID; SC
     Route: 058
     Dates: start: 20060915, end: 20061001
  2. BYETTA [Suspect]
     Indication: DIABETES MELLITUS NON-INSULIN-DEPENDENT
     Dosage: 10 + 10 + 5 + 5 MCG; BID; SC
     Route: 058
     Dates: start: 20061001
  3. BYETTA [Suspect]
     Indication: DIABETES MELLITUS NON-INSULIN-DEPENDENT
     Dosage: 10 + 10 + 5 + 5 MCG; BID; SC
     Route: 058
     Dates: start: 20061215
  4. GLUCOTROL [Concomitant]
  5. GLUCOPHAGE [Concomitant]
  6. AVANDIA [Concomitant]

REACTIONS (6)
  - APHTHOUS STOMATITIS [None]
  - BLOOD GLUCOSE INCREASED [None]
  - CONDITION AGGRAVATED [None]
  - DRUG EFFECT DECREASED [None]
  - INJECTION SITE BRUISING [None]
  - WEIGHT DECREASED [None]
